FAERS Safety Report 7214528-2 (Version None)
Quarter: 2010Q4

REPORT INFORMATION
  Report Type: 
  Country: None (occurrence: None)
  Receive Date: 20101227
  Receipt Date: 20101215
  Transmission Date: 20110411
  Serious: Yes (Hospitalization)
  Sender: FDA-Public Use
  Company Number: 2010SP065148

PATIENT
  Age: 67 Year
  Sex: Female

DRUGS (8)
  1. REMERON [Suspect]
     Indication: PRODUCT USED FOR UNKNOWN INDICATION
     Dosage: 30 MG; BID; PO, 30 MG; QD;
     Route: 048
  2. AMLODIPIN-MEPHA (AMLODIPINE MESILATE) [Suspect]
     Indication: PRODUCT USED FOR UNKNOWN INDICATION
     Dosage: 5 MG; QAM; PO
     Route: 048
  3. FEMARA [Concomitant]
  4. FRAGMIN [Concomitant]
  5. ZURCAL [Concomitant]
  6. TEMESTA [Concomitant]
  7. ZOLDORM [Concomitant]
  8. ELTROXIN [Concomitant]

REACTIONS (6)
  - DRUG INTERACTION [None]
  - GENERAL PHYSICAL HEALTH DETERIORATION [None]
  - HYPOTHYROIDISM [None]
  - INCORRECT DOSE ADMINISTERED [None]
  - OVERDOSE [None]
  - TREMOR [None]
